FAERS Safety Report 4539014-X (Version None)
Quarter: 2005Q1

REPORT INFORMATION
  Report Type: 
  Country: None (occurrence: None)
  Receive Date: 20041223
  Receipt Date: 20040927
  Transmission Date: 20050727
  Serious: No
  Sender: FDA-Public Use
  Company Number: US-JNJFOC-20040909384

PATIENT
  Age: 33 Year
  Sex: Female
  Weight: 99.7913 kg

DRUGS (6)
  1. ORTHO EVRA [Suspect]
     Indication: CONTRACEPTION
     Dosage: 1 DOSE (S), 3 IN 4 WEEK, TRANSDERMAL
     Route: 062
     Dates: start: 20040829
  2. DITROPAN [Concomitant]
  3. WELLBUTRIN [Concomitant]
  4. GLUCOPHAGE [Concomitant]
  5. PHENTERMINE [Concomitant]
  6. ASPIRIN [Concomitant]

REACTIONS (3)
  - ABDOMINAL PAIN [None]
  - BACK PAIN [None]
  - VAGINAL HAEMORRHAGE [None]
